FAERS Safety Report 6205218-3 (Version None)
Quarter: 2009Q2

REPORT INFORMATION
  Report Type: 
  Country: None (occurrence: None)
  Receive Date: 20090527
  Receipt Date: 20090302
  Transmission Date: 20091009
  Serious: No
  Sender: FDA-Public Use
  Company Number: US-ABBOTT-09P-163-0560502-00

PATIENT
  Sex: Male
  Weight: 73.094 kg

DRUGS (9)
  1. SIMCOR [Suspect]
     Indication: BLOOD CHOLESTEROL INCREASED
     Dosage: 1000-20 MG
     Route: 048
     Dates: start: 20081101
  2. LOTREL [Concomitant]
     Indication: HYPERTENSION
     Dosage: 5-40 MG
     Route: 048
  3. METOPROLOL [Concomitant]
     Indication: TACHYCARDIA
     Route: 048
  4. CENTRUM SILVER [Concomitant]
     Indication: MEDICAL DIET
     Dosage: UNKNOWN
     Route: 048
  5. VITAMIN B COMPLEX CAP [Concomitant]
     Indication: MEDICAL DIET
     Dosage: UNKNOWN
     Route: 048
  6. SUNCHLORALL [Concomitant]
     Indication: MEDICAL DIET
     Route: 048
  7. FOLIC ACID [Concomitant]
     Indication: VITAMIN SUPPLEMENTATION
     Route: 048
  8. GARLIC [Concomitant]
     Indication: MEDICAL DIET
     Dosage: UNKNOWN
     Route: 048
  9. FISH OIL [Concomitant]
     Indication: MEDICAL DIET
     Route: 048

REACTIONS (4)
  - DIARRHOEA [None]
  - FLUSHING [None]
  - HAEMATOCHEZIA [None]
  - PRURITUS [None]
